FAERS Safety Report 4300714-8 (Version None)
Quarter: 2004Q1

REPORT INFORMATION
  Report Type: 
  Country: None (occurrence: None)
  Receive Date: 20040218
  Receipt Date: 20040210
  Transmission Date: 20041129
  Serious: Yes (Hospitalization)
  Sender: FDA-Public Use
  Company Number: US-JNJFOC-20030905351

PATIENT
  Age: 93 Year
  Sex: Female

DRUGS (6)
  1. RISPERDAL [Suspect]
     Indication: DEMENTIA
     Dosage: 0.25 MG, 2 IN 1 DAY, ORAL
     Route: 048
     Dates: start: 20021201, end: 20030201
  2. LOTENSIN [Concomitant]
  3. VIOXX [Concomitant]
  4. ADALAT [Concomitant]
  5. EXELON [Concomitant]
  6. SENNA (SENNA) [Concomitant]

REACTIONS (5)
  - BACK INJURY [None]
  - CONTUSION [None]
  - FALL [None]
  - LOSS OF CONSCIOUSNESS [None]
  - RENAL FAILURE [None]
